FAERS Safety Report 10185747 (Version 1)
Quarter: 2014Q2

REPORT INFORMATION
  Report Type: Spontaneous
  Country: US (occurrence: None)
  Receive Date: 20140520
  Receipt Date: 20140520
  Transmission Date: 20141212
  Serious: No
  Sender: FDA-Public Use
  Company Number: None

PATIENT
  Age: 19 Year
  Sex: Male
  Weight: 91 kg

DRUGS (2)
  1. CYTARABINE [Suspect]
     Dates: end: 20140508
  2. DAUNORUBICIN [Suspect]
     Dates: end: 20140504

REACTIONS (5)
  - Renal failure acute [None]
  - Blood lactate dehydrogenase increased [None]
  - Tumour lysis syndrome [None]
  - Blood potassium decreased [None]
  - Haemodialysis [None]
